FAERS Safety Report 16454091 (Version 2)
Quarter: 2019Q2

REPORT INFORMATION
  Report Type: Report from Study
  Country: None (occurrence: ES)
  Receive Date: 20190620
  Receipt Date: 20190622
  Transmission Date: 20190711
  Serious: Yes (Other)
  Sender: FDA-Public Use
  Company Number: ES-ABBVIE-19S-144-2825978-00

PATIENT
  Age: 78 Year
  Sex: Female
  Weight: 43 kg

DRUGS (2)
  1. DUODOPA [Suspect]
     Active Substance: CARBIDOPA\LEVODOPA
     Indication: PARKINSON^S DISEASE
     Dosage: MD 20ML CD 1.6 ML/H
     Route: 050
     Dates: start: 20190417
  2. DUODOPA [Suspect]
     Active Substance: CARBIDOPA\LEVODOPA
     Dosage: MD18ML CD 1.8 ML/H
     Route: 050
     Dates: start: 2019

REACTIONS (7)
  - On and off phenomenon [Recovering/Resolving]
  - Freezing phenomenon [Unknown]
  - Malaise [Unknown]
  - Suicide attempt [Not Recovered/Not Resolved]
  - Dyskinesia [Recovering/Resolving]
  - Depressed mood [Recovering/Resolving]
  - Suicidal ideation [Unknown]

NARRATIVE: CASE EVENT DATE: 2019
